FAERS Safety Report 12120290 (Version 2)
Quarter: 2016Q4

REPORT INFORMATION
  Report Type: Report from Study
  Country: NZ (occurrence: NZ)
  Receive Date: 20160226
  Receipt Date: 20161122
  Transmission Date: 20170206
  Serious: Yes (Other)
  Sender: FDA-Public Use
  Company Number: NZ-BAYER-2016-036196

PATIENT
  Age: 27 Year
  Sex: Female

DRUGS (1)
  1. MIRENA [Suspect]
     Active Substance: LEVONORGESTREL
     Dosage: 20 MCG/24HR, CONT
     Route: 015
     Dates: start: 20151007, end: 201601

REACTIONS (4)
  - Device dislocation [None]
  - Loop electrosurgical excision procedure [None]
  - Multiple use of single-use product [None]
  - Intra-uterine contraceptive device removal [None]

NARRATIVE: CASE EVENT DATE: 2016
